FAERS Safety Report 5512928-X (Version None)
Quarter: 2007Q4

REPORT INFORMATION
  Report Type: 
  Country: None (occurrence: None)
  Receive Date: 20071108
  Receipt Date: 20071108
  Transmission Date: 20080405
  Serious: Yes (Life-Threatening)
  Sender: FDA-Public Use
  Company Number: None

PATIENT
  Age: 35 Year
  Sex: Female
  Weight: 55.8 kg

DRUGS (1)
  1. INFED [Suspect]
     Indication: ANAEMIA
     Dosage: 25MG TEST DOSE IV
     Route: 042
     Dates: start: 20071010, end: 20071010

REACTIONS (2)
  - PHARYNGOLARYNGEAL PAIN [None]
  - THROAT TIGHTNESS [None]
